FAERS Safety Report 6565974-1 (Version None)
Quarter: 2010Q1

REPORT INFORMATION
  Report Type: 
  Country: None (occurrence: None)
  Receive Date: 20100129
  Receipt Date: 20100129
  Transmission Date: 20100710
  Serious: No
  Sender: FDA-Public Use
  Company Number: None

PATIENT
  Age: 73 Year
  Sex: Male

DRUGS (2)
  1. ENOXAPARIN SODIUM [Suspect]
     Indication: PROPHYLAXIS
     Dosage: 30 MG BID SQ
     Route: 058
     Dates: start: 20091006, end: 20091007
  2. ASPIRIN [Suspect]
     Indication: PROPHYLAXIS
     Dosage: 325 MG EVERY DAY PO
     Route: 048
     Dates: start: 20090808, end: 20091008

REACTIONS (3)
  - ANAEMIA POSTOPERATIVE [None]
  - HAEMATURIA [None]
  - POST PROCEDURAL HAEMORRHAGE [None]
